FAERS Safety Report 8127519-4 (Version None)
Quarter: 2012Q1

REPORT INFORMATION
  Report Type: 
  Country: None (occurrence: None)
  Receive Date: 20120210
  Receipt Date: 20120206
  Transmission Date: 20120608
  Serious: Yes (Death, Life-Threatening, Hospitalization, Other)
  Sender: FDA-Public Use
  Company Number: CH-PFIZER INC-HQWYE950125MAY05

PATIENT
  Age: 68 Year
  Sex: Male

DRUGS (13)
  1. PREDNISONE [Concomitant]
     Dosage: UNK
     Route: 065
     Dates: start: 20050209
  2. TORSEMIDE [Concomitant]
     Dosage: UNK
     Route: 065
     Dates: start: 20050201, end: 20050301
  3. VALTREX [Suspect]
     Indication: ASPERGILLOMA
     Dosage: UNKNOWN
     Route: 065
     Dates: start: 20050220, end: 20050308
  4. ONCOVIN [Suspect]
     Indication: ACUTE LYMPHOCYTIC LEUKAEMIA
     Dosage: UNKNOWN
     Route: 065
     Dates: start: 20050209, end: 20050307
  5. CERUBIDINE [Suspect]
     Indication: ACUTE LYMPHOCYTIC LEUKAEMIA
     Dosage: UNKNOWN
     Route: 065
     Dates: start: 20050209, end: 20050307
  6. METHOTREXATE SODIUM [Suspect]
     Indication: ACUTE LYMPHOCYTIC LEUKAEMIA
     Dosage: UNKNOWN
     Route: 065
     Dates: start: 20050209, end: 20050307
  7. ASPARAGINASE [Suspect]
     Indication: ACUTE LYMPHOCYTIC LEUKAEMIA
     Dosage: UNKNOWN
     Route: 065
     Dates: start: 20050209, end: 20050307
  8. FUNGIZONE [Suspect]
     Indication: ASPERGILLOMA
     Dosage: UNKNOWN
     Route: 065
     Dates: start: 20050201, end: 20050201
  9. BACTRIM [Concomitant]
     Dosage: UNK
     Route: 065
     Dates: start: 20050201, end: 20050301
  10. CYCLOPHOSPHAMIDE [Suspect]
     Indication: ACUTE LYMPHOCYTIC LEUKAEMIA
     Dosage: UNKNOWN
     Route: 065
     Dates: start: 20050209, end: 20050307
  11. NAVOBAN [Concomitant]
     Dosage: UNK
     Route: 065
     Dates: start: 20050201, end: 20050301
  12. TAZOBACTAM [Suspect]
     Indication: ASPERGILLOMA
     Dosage: UNK
     Dates: start: 20050212, end: 20050304
  13. VFEND [Suspect]
     Indication: ASPERGILLOMA
     Dosage: UNK
     Dates: start: 20050220, end: 20050308

REACTIONS (11)
  - CHOLESTASIS [None]
  - HEPATIC STEATOSIS [None]
  - UPPER GASTROINTESTINAL HAEMORRHAGE [None]
  - LOWER GASTROINTESTINAL HAEMORRHAGE [None]
  - BLOOD BILIRUBIN INCREASED [None]
  - MULTI-ORGAN FAILURE [None]
  - CARDIAC DISORDER [None]
  - HEPATIC ENCEPHALOPATHY [None]
  - BRONCHOPULMONARY ASPERGILLOSIS [None]
  - ALANINE AMINOTRANSFERASE INCREASED [None]
  - RENAL FAILURE ACUTE [None]
